FAERS Safety Report 13389312 (Version 1)
Quarter: 2017Q1

REPORT INFORMATION
  Report Type: Spontaneous
  Country: ES (occurrence: ES)
  Receive Date: 20170330
  Receipt Date: 20170330
  Transmission Date: 20170429
  Serious: Yes (Other)
  Sender: FDA-Public Use
  Company Number: ES-MERCK KGAA-1064824

PATIENT
  Age: 78 Year
  Sex: Female
  Weight: 65 kg

DRUGS (3)
  1. LORMETAZEPAM NORMON [Suspect]
     Active Substance: LORMETAZEPAM
     Route: 048
     Dates: start: 20170201, end: 20170226
  2. EZETIMIBE. [Suspect]
     Active Substance: EZETIMIBE
     Route: 048
     Dates: start: 20161001, end: 20170219
  3. NOVOTHYROX [Suspect]
     Active Substance: LEVOTHYROXINE SODIUM
     Indication: HYPERTHYROIDISM
     Route: 048
     Dates: start: 20161001, end: 20170219

REACTIONS (4)
  - Diarrhoea [Recovered/Resolved]
  - Paraesthesia [Not Recovered/Not Resolved]
  - Vertigo [Not Recovered/Not Resolved]
  - Muscular weakness [Not Recovered/Not Resolved]

NARRATIVE: CASE EVENT DATE: 20170212
